FAERS Safety Report 10705502 (Version 1)
Quarter: 2015Q1

REPORT INFORMATION
  Report Type: Spontaneous
  Country: US (occurrence: US)
  Receive Date: 20150112
  Receipt Date: 20150112
  Transmission Date: 20150721
  Serious: No
  Sender: FDA-Public Use
  Company Number: US-009507513-1501USA003359

PATIENT
  Sex: Female

DRUGS (1)
  1. MIRALAX [Suspect]
     Active Substance: POLYETHYLENE GLYCOL 3350
     Indication: CONSTIPATION
     Dosage: UNK, UNKNOWN
     Route: 048

REACTIONS (6)
  - Diarrhoea [Unknown]
  - Acid base balance abnormal [Unknown]
  - Drug prescribing error [Unknown]
  - Muscle spasms [Unknown]
  - Underdose [Unknown]
  - Off label use [Unknown]
